FAERS Safety Report 20034029 (Version 1)
Quarter: 2021Q4

REPORT INFORMATION
  Report Type: Spontaneous
  Country: US (occurrence: US)
  Receive Date: 20211104
  Receipt Date: 20211104
  Transmission Date: 20220303
  Serious: Yes (Other)
  Sender: FDA-Public Use
  Company Number: US-MYLANLABS-2021M1080931

PATIENT
  Age: 44 Year
  Sex: Male

DRUGS (2)
  1. FENTANYL [Suspect]
     Active Substance: FENTANYL
     Indication: Product used for unknown indication
     Route: 065
  2. NALOXONE [Suspect]
     Active Substance: NALOXONE
     Indication: Overdose
     Dosage: INTRANASAL
     Route: 045

REACTIONS (6)
  - Tremor [Unknown]
  - Lethargy [Unknown]
  - Agitation [Unknown]
  - Drug withdrawal syndrome [Unknown]
  - Nausea [Unknown]
  - Overdose [Unknown]
